FAERS Safety Report 5558564-0 (Version None)
Quarter: 2007Q4

REPORT INFORMATION
  Report Type: 
  Country: None (occurrence: None)
  Receive Date: 20071214
  Receipt Date: 20070904
  Transmission Date: 20080405
  Serious: No
  Sender: FDA-Public Use
  Company Number: US-ABBOTT-07P-163-0415992-00

PATIENT
  Sex: Female
  Weight: 46.762 kg

DRUGS (9)
  1. HUMIRA [Suspect]
     Indication: RHEUMATOID ARTHRITIS
     Route: 058
     Dates: start: 20070401
  2. LEFLUNOMIDE [Concomitant]
     Indication: RHEUMATOID ARTHRITIS
     Route: 048
  3. FINASTERIDE [Concomitant]
     Indication: ALOPECIA
     Route: 048
  4. RABEPRAZOLE SODIUM [Concomitant]
     Indication: GASTROOESOPHAGEAL REFLUX DISEASE
     Route: 048
  5. COLESEVELAM HYDROCHLORIDE [Concomitant]
     Indication: BLOOD CHOLESTEROL
     Route: 048
  6. RALOXIFENE HYDROCHLORIDE [Concomitant]
     Indication: HORMONE REPLACEMENT THERAPY
     Route: 048
  7. RALOXIFENE HYDROCHLORIDE [Concomitant]
     Indication: OSTEOPOROSIS PROPHYLAXIS
  8. ESTRADIOL [Concomitant]
     Indication: VULVOVAGINAL DRYNESS
     Route: 067
  9. ARIDIA [Concomitant]
     Indication: OSTEOPOROSIS
     Route: 042

REACTIONS (2)
  - MUSCULOSKELETAL PAIN [None]
  - PAIN IN EXTREMITY [None]
